FAERS Safety Report 6865295-3 (Version None)
Quarter: 2010Q3

REPORT INFORMATION
  Report Type: 
  Country: None (occurrence: None)
  Receive Date: 20100721
  Receipt Date: 20080416
  Transmission Date: 20110219
  Serious: No
  Sender: FDA-Public Use
  Company Number: US-PFIZER INC-2008035519

PATIENT
  Sex: Female
  Weight: 56.7 kg

DRUGS (6)
  1. CHANTIX [Suspect]
     Indication: SMOKING CESSATION THERAPY
     Dates: start: 20080301
  2. LISINOPRIL [Concomitant]
     Indication: HYPERTENSION
  3. LOVASTATIN [Concomitant]
     Indication: BLOOD CHOLESTEROL INCREASED
  4. ADVAIR DISKUS 100/50 [Concomitant]
     Indication: DYSPNOEA
  5. ACETYLSALICYLIC ACID [Concomitant]
  6. VITAMINS [Concomitant]

REACTIONS (1)
  - ABDOMINAL PAIN UPPER [None]
